FAERS Safety Report 6701426-3 (Version None)
Quarter: 2010Q2

REPORT INFORMATION
  Report Type: 
  Country: None (occurrence: None)
  Receive Date: 20100429
  Receipt Date: 20100423
  Transmission Date: 20101027
  Serious: Yes (Death, Hospitalization)
  Sender: FDA-Public Use
  Company Number: DE-ELI_LILLY_AND_COMPANY-DE200805001474

PATIENT
  Sex: Male
  Weight: 61 kg

DRUGS (2)
  1. PEMETREXED [Suspect]
     Indication: NON-SMALL CELL LUNG CANCER
     Dosage: 860 MG, UNKNOWN
     Route: 042
     Dates: start: 20080421
  2. CIPROFLOXACIN [Concomitant]
     Indication: PROPHYLAXIS
     Dosage: 500 MG, UNKNOWN
     Route: 048
     Dates: start: 20080411

REACTIONS (2)
  - LEUKOPENIA [None]
  - MUCOSAL INFLAMMATION [None]
